FAERS Safety Report 10182085 (Version 1)
Quarter: 2014Q2

REPORT INFORMATION
  Report Type: Not Available
  Country: DE (occurrence: DE)
  Receive Date: 20140520
  Receipt Date: 20140520
  Transmission Date: 20141212
  Serious: No
  Sender: FDA-Public Use
  Company Number: DE-LUPIN PHARMACEUTICALS INC.-2014-00875

PATIENT
  Sex: Female

DRUGS (1)
  1. DESLORATADIN-HORMOSAN 5MG TABLET [Suspect]
     Indication: SEASONAL ALLERGY
     Route: 065

REACTIONS (1)
  - Drug ineffective [Unknown]
